FAERS Safety Report 11455586 (Version 1)
Quarter: 2015Q3

REPORT INFORMATION
  Report Type: Spontaneous
  Country: US (occurrence: US)
  Receive Date: 20150903
  Receipt Date: 20150903
  Transmission Date: 20151125
  Serious: No
  Sender: FDA-Public Use
  Company Number: US-BEH-2014044119

PATIENT
  Sex: Female
  Weight: 76 kg

DRUGS (15)
  1. VITAMIN D [Concomitant]
     Active Substance: CHOLECALCIFEROL
  2. DILTIAZEM [Concomitant]
     Active Substance: DILTIAZEM
  3. VENTOLIN [Concomitant]
     Active Substance: ALBUTEROL SULFATE
  4. IMITREX [Concomitant]
     Active Substance: SUMATRIPTAN\SUMATRIPTAN SUCCINATE
  5. EPIPEN [Concomitant]
     Active Substance: EPINEPHRINE
  6. ZEMAIRA [Suspect]
     Active Substance: .ALPHA.1-PROTEINASE INHIBITOR HUMAN
     Dosage: 1016 MG VIAL; 60 MG/KG WEEKLY
     Route: 042
  7. VITAMIN C [Concomitant]
     Active Substance: ASCORBIC ACID
  8. CITALOPRAM [Concomitant]
     Active Substance: CITALOPRAM HYDROBROMIDE
  9. NAPROXEN. [Concomitant]
     Active Substance: NAPROXEN
  10. HYDROCHLOROTHIAZIDE. [Concomitant]
     Active Substance: HYDROCHLOROTHIAZIDE
  11. SODIUM CHLORIDE. [Concomitant]
     Active Substance: SODIUM CHLORIDE
  12. LMX [Concomitant]
     Active Substance: LIDOCAINE
  13. ZEMAIRA [Suspect]
     Active Substance: .ALPHA.1-PROTEINASE INHIBITOR HUMAN
     Indication: ALPHA-1 ANTI-TRYPSIN DEFICIENCY
     Dosage: 1016 MG VIAL; 60 MG/KG IV WEEKLY; MAX. RATE 0.08 ML/KG/MIN (6.2 ML/MIN)
     Route: 042
  14. ADVIL [Concomitant]
     Active Substance: IBUPROFEN
  15. DIPHENHYDRAMINE. [Concomitant]
     Active Substance: DIPHENHYDRAMINE

REACTIONS (1)
  - Fatigue [Unknown]
